FAERS Safety Report 10098411 (Version 1)
Quarter: 2014Q2

REPORT INFORMATION
  Report Type: Spontaneous
  Country: BR (occurrence: BR)
  Receive Date: 20140423
  Receipt Date: 20140423
  Transmission Date: 20141212
  Serious: Yes (Death)
  Sender: FDA-Public Use
  Company Number: BR-JNJFOC-20140413070

PATIENT
  Age: 48 Year
  Sex: Female

DRUGS (3)
  1. XARELTO [Suspect]
     Indication: PLASTIC SURGERY
     Route: 048
     Dates: start: 20130430, end: 20130430
  2. XARELTO [Suspect]
     Indication: THROMBOSIS PROPHYLAXIS
     Route: 048
     Dates: start: 20130430, end: 20130430
  3. ENOXAPARIN [Concomitant]
     Route: 065

REACTIONS (3)
  - Coagulopathy [Fatal]
  - Hypovolaemic shock [Fatal]
  - Off label use [Unknown]
